FAERS Safety Report 21213298 (Version 2)
Quarter: 2022Q3

REPORT INFORMATION
  Report Type: Spontaneous
  Country: DE (occurrence: None)
  Receive Date: 20220815
  Receipt Date: 20220818
  Transmission Date: 20221027
  Serious: Yes (Hospitalization, Other)
  Sender: FDA-Public Use
  Company Number: 2022A282467

PATIENT
  Age: 87 Year
  Sex: Male
  Weight: 62 kg

DRUGS (6)
  1. DAPAGLIFLOZIN [Suspect]
     Active Substance: DAPAGLIFLOZIN
     Indication: Type 2 diabetes mellitus
     Dosage: 5 MG
     Route: 048
     Dates: start: 20220608, end: 20220615
  2. VITAMIN D3/K2 [Concomitant]
     Dosage: 2-0-0
     Route: 065
  3. LEVOTHYROXINE SODIUM [Concomitant]
     Active Substance: LEVOTHYROXINE SODIUM
     Dosage: 1-0-088UG/INHAL DAILY
     Route: 065
  4. MOVICOL [Concomitant]
     Active Substance: POLYETHYLENE GLYCOL 3350\POTASSIUM CHLORIDE\SODIUM BICARBONATE\SODIUM CHLORIDE
     Dosage: 1-0-0
     Route: 065
  5. FINASTERIDE [Concomitant]
     Active Substance: FINASTERIDE
     Dosage: 1-0-0
     Route: 065
  6. B12 ANKERMANN [Concomitant]
     Dosage: 1-0-0
     Route: 065

REACTIONS (9)
  - Ocular icterus [Recovered/Resolved]
  - Drug-induced liver injury [Recovered/Resolved]
  - Nausea [Recovering/Resolving]
  - Transaminases increased [Recovered/Resolved]
  - Abdominal pain [Recovering/Resolving]
  - Bilirubinuria [Recovered/Resolved]
  - Hyperbilirubinaemia [Recovered/Resolved]
  - Weight decreased [Recovering/Resolving]
  - Gastrooesophageal reflux disease [Unknown]

NARRATIVE: CASE EVENT DATE: 20220616
